FAERS Safety Report 24904539 (Version 2)
Quarter: 2025Q1

REPORT INFORMATION
  Report Type: Spontaneous
  Country: US (occurrence: US)
  Receive Date: 20250130
  Receipt Date: 20250212
  Transmission Date: 20250409
  Serious: Yes (Other)
  Sender: TEVA
  Company Number: US-TEVA-VS-3289668

PATIENT
  Age: 71 Year
  Sex: Male

DRUGS (2)
  1. BUDESONIDE [Suspect]
     Active Substance: BUDESONIDE
     Indication: Enterocolitis viral
     Route: 065
  2. MESALAMINE [Concomitant]
     Active Substance: MESALAMINE
     Indication: Rotavirus infection
     Route: 065

REACTIONS (2)
  - Proctitis viral [Recovering/Resolving]
  - Cytomegalovirus infection [Recovering/Resolving]
